FAERS Safety Report 8881282 (Version 1)
Quarter: 2012Q4

REPORT INFORMATION
  Report Type: 
  Country: DE (occurrence: DE)
  Receive Date: 20121031
  Receipt Date: 20121031
  Transmission Date: 20130627
  Serious: Yes (Death)
  Sender: FDA-Public Use
  Company Number: DE-MYLANLABS-2012S1021777

PATIENT
  Age: 83 Year
  Sex: Female
  Weight: 59 kg

DRUGS (20)
  1. CLOPIDOGREL [Suspect]
     Indication: STENT PLACEMENT
     Route: 048
     Dates: start: 20120418, end: 20120510
  2. OMEBETA [Concomitant]
     Indication: PRODUCT USED FOR UNKNOWN INDICATION
     Dosage: if necessary
     Route: 048
  3. PANTOPRAZOL [Concomitant]
     Indication: GASTRITIS PROPHYLAXIS
     Dosage: daily dose: 20 Mg millgram(s) every Days
     Route: 048
     Dates: start: 20120403, end: 20120430
  4. ASS [Concomitant]
     Indication: PRODUCT USED FOR UNKNOWN INDICATION
     Dosage: daily dose: 100 Mg millgram(s) every Days
     Route: 048
  5. PRASUGREL [Concomitant]
     Indication: CORONARY ARTERY DISEASE
     Dosage: daily dose: 10 Mg millgram(s) every Days
     Dates: start: 20120511, end: 20120513
  6. FERRO SANOL /00023502/ [Concomitant]
     Indication: ANAEMIA
     Dosage: 1-1-1
     Route: 048
     Dates: start: 20120329, end: 20120430
  7. DIGITOXIN [Concomitant]
     Indication: HEART RATE
     Dosage: daily dose: 0.07 Mg millgram(s) every Days
     Route: 048
     Dates: start: 20120426, end: 20120529
  8. HCT [Concomitant]
     Indication: CARDIAC FAILURE
     Dosage: 1-0-0
     Route: 048
     Dates: start: 20120402, end: 20120405
  9. HCT [Concomitant]
     Indication: CARDIAC FAILURE
     Dosage: 2-0-0
     Route: 048
     Dates: start: 20120406, end: 20120425
  10. TORASEMID [Concomitant]
     Indication: PRODUCT USED FOR UNKNOWN INDICATION
     Dosage: 1-0-1/2
     Route: 048
     Dates: end: 20120524
  11. METOPROLOL [Concomitant]
     Indication: PRODUCT USED FOR UNKNOWN INDICATION
     Dosage: daily dose: 100 Mg millgram(s) every Days
     Route: 048
     Dates: end: 20120525
  12. ENALAPRIL [Concomitant]
     Indication: CARDIAC FAILURE
     Dosage: daily dose: 10 Mg millgram(s) every Days
     Route: 048
     Dates: start: 20120326, end: 20120430
  13. SIMVASTATIN [Concomitant]
     Indication: PRODUCT USED FOR UNKNOWN INDICATION
     Dosage: daily dose: 40 Mg millgram(s) every Days
     Route: 048
     Dates: end: 20120430
  14. METHIZOL [Concomitant]
     Indication: PRODUCT USED FOR UNKNOWN INDICATION
     Dosage: 1/2-0-0
     Route: 048
     Dates: end: 20120326
  15. IBUPROFEN [Concomitant]
     Indication: PAIN
     Dosage: daily dose: 1000 Mg millgram(s) every Days
     Route: 048
     Dates: start: 20120402, end: 20120416
  16. ALLOPURINOL [Concomitant]
     Indication: HYPERURICAEMIA
     Route: 048
     Dates: start: 20120416, end: 20120430
  17. COLCHYSAT [Concomitant]
     Indication: GOUT
     Dosage: daily dose: 75 G gram(s) every Days
     Dates: start: 20120409, end: 20120415
  18. TRAMADOLOR [Concomitant]
     Indication: PRODUCT USED FOR UNKNOWN INDICATION
     Dosage: IF NECESSARY
     Route: 048
  19. ZOPICLON [Concomitant]
     Indication: SLEEP DISORDER
     Dosage: daily dose: 10 Mg millgram(s) every Days
     Route: 048
     Dates: start: 20120423, end: 20120430
  20. DUOPLAVIN [Concomitant]
     Indication: PRODUCT USED FOR UNKNOWN INDICATION
     Dates: end: 20120510

REACTIONS (1)
  - Drug-induced liver injury [Fatal]
